FAERS Safety Report 16741431 (Version 3)
Quarter: 2019Q4

REPORT INFORMATION
  Report Type: Spontaneous
  Country: US (occurrence: US)
  Receive Date: 20190826
  Receipt Date: 20191007
  Transmission Date: 20200122
  Serious: Yes (Death, Hospitalization, Other)
  Sender: FDA-Public Use
  Company Number: US-009507513-1908USA009015

PATIENT
  Age: 70 Year
  Sex: Male
  Weight: 66.9 kg

DRUGS (9)
  1. COLACE [Concomitant]
     Active Substance: DOCUSATE SODIUM
  2. AMANTADINE. [Concomitant]
     Active Substance: AMANTADINE HYDROCHLORIDE
     Indication: AMNESIA
     Dosage: UNK
     Route: 048
  3. KEYTRUDA [Suspect]
     Active Substance: PEMBROLIZUMAB
     Indication: CENTRAL NERVOUS SYSTEM LYMPHOMA
     Dosage: 2 MG/KG EVERY 21 DAYS
     Route: 042
     Dates: start: 20160815, end: 201704
  4. KEYTRUDA [Suspect]
     Active Substance: PEMBROLIZUMAB
     Dosage: 130 MILLIGRAM
     Route: 042
     Dates: start: 20190412, end: 20190705
  5. LEVOTHYROXINE SODIUM. [Concomitant]
     Active Substance: LEVOTHYROXINE SODIUM
     Indication: HYPERTHYROIDISM
     Dosage: 0.2 MILLIGRAM (TOTAL DAILY DOSE: 0.2 MILLIGRAM)
     Route: 048
  6. REGLAN [Concomitant]
     Active Substance: METOCLOPRAMIDE HYDROCHLORIDE
  7. LORAZEPAM. [Concomitant]
     Active Substance: LORAZEPAM
     Indication: ANXIETY
     Dosage: 0.5 MILLIGRAM (TOTAL DAILY DOSE: 2 MG)
     Route: 048
  8. ZOFRAN [Concomitant]
     Active Substance: ONDANSETRON HYDROCHLORIDE
  9. SENOKOT [Concomitant]
     Active Substance: SENNOSIDES
     Indication: CONSTIPATION
     Dosage: 8.4 MILLIGRAM (TOTAL DAILY DOSE: 8.4 MG)
     Route: 048

REACTIONS (18)
  - B-cell lymphoma recurrent [Unknown]
  - Lung consolidation [Unknown]
  - Product use in unapproved indication [Unknown]
  - Dehydration [Unknown]
  - Adverse event [Unknown]
  - Malignant neoplasm progression [Fatal]
  - B-cell lymphoma [Unknown]
  - Adverse event [Unknown]
  - Pleural effusion [Unknown]
  - Failure to thrive [Unknown]
  - Pruritus [Unknown]
  - Acute respiratory failure [Unknown]
  - Acute kidney injury [Unknown]
  - Seizure [Unknown]
  - Atelectasis [Unknown]
  - Malnutrition [Unknown]
  - Sepsis [Unknown]
  - Tracheostomy [Unknown]

NARRATIVE: CASE EVENT DATE: 20160815
